FAERS Safety Report 20168132 (Version 1)
Quarter: 2021Q4

REPORT INFORMATION
  Report Type: Spontaneous
  Country: US (occurrence: US)
  Receive Date: 20211210
  Receipt Date: 20211210
  Transmission Date: 20220304
  Serious: No
  Sender: FDA-Public Use
  Company Number: US-TARO-2021TAR01027

PATIENT

DRUGS (1)
  1. FLUOROURACIL [Suspect]
     Active Substance: FLUOROURACIL
     Indication: Actinic keratosis
     Dosage: UNK, USED A VERY SMALL DAB, AND BLENDED IT ON NOSE MAYBE THE SIZE OF A PENCIL ERASER
     Route: 061
     Dates: start: 20210910, end: 20210911

REACTIONS (6)
  - Diarrhoea [Recovered/Resolved]
  - Abdominal pain upper [Recovered/Resolved]
  - Electric shock sensation [Recovered/Resolved]
  - Dizziness [Recovered/Resolved]
  - Irritability [Recovered/Resolved]
  - Insomnia [Recovered/Resolved]

NARRATIVE: CASE EVENT DATE: 20210910
